FAERS Safety Report 24634094 (Version 1)
Quarter: 2024Q4

REPORT INFORMATION
  Report Type: Report from Study
  Country: CA (occurrence: CA)
  Receive Date: 20241119
  Receipt Date: 20241119
  Transmission Date: 20250114
  Serious: Yes (Other)
  Sender: SANDOZ
  Company Number: CA-SANDOZ-SDZ2024CA095799

PATIENT
  Sex: Female
  Weight: 11.4 kg

DRUGS (2)
  1. OMNITROPE [Suspect]
     Active Substance: SOMATROPIN
     Indication: Small for dates baby
     Dosage: 0.4 MG 6 TIMES PER WEEK
     Route: 058
     Dates: start: 20240603
  2. OMNITROPE [Suspect]
     Active Substance: SOMATROPIN
     Dosage: 0.6 MG 6 TIMES PER WEEK
     Route: 058

REACTIONS (3)
  - Chronic kidney disease [Unknown]
  - Short stature [Unknown]
  - Therapy change [Unknown]
